FAERS Safety Report 24814275 (Version 2)
Quarter: 2025Q1

REPORT INFORMATION
  Report Type: Spontaneous
  Country: US (occurrence: US)
  Receive Date: 20250107
  Receipt Date: 20250120
  Transmission Date: 20250409
  Serious: Yes (Hospitalization, Other)
  Sender: ALEXION PHARMACEUTICALS
  Company Number: US-SA-2025SA000840

PATIENT
  Age: 8 Day
  Weight: 3.2 kg

DRUGS (1)
  1. BEYFORTUS [Suspect]
     Active Substance: NIRSEVIMAB-ALIP

REACTIONS (4)
  - Seizure like phenomena [Unknown]
  - Dyskinesia [Unknown]
  - Hiccups [Unknown]
  - Eye movement disorder [Unknown]
